FAERS Safety Report 5930907-5 (Version None)
Quarter: 2008Q4

REPORT INFORMATION
  Report Type: 
  Country: None (occurrence: None)
  Receive Date: 20081027
  Receipt Date: 20081016
  Transmission Date: 20090506
  Serious: Yes (Hospitalization, Other)
  Sender: FDA-Public Use
  Company Number: US-AMGEN-QUU274775

PATIENT
  Sex: Female
  Weight: 94.4 kg

DRUGS (6)
  1. ENBREL [Suspect]
     Indication: PSORIATIC ARTHROPATHY
     Route: 058
     Dates: start: 20001001, end: 20080104
  2. ENBREL [Suspect]
     Indication: PSORIASIS
  3. CELEBREX [Concomitant]
  4. GLUCOPHAGE [Concomitant]
  5. CELEXA [Concomitant]
  6. MULTI-VITAMINS [Concomitant]

REACTIONS (27)
  - ARTHRALGIA [None]
  - ASTHENIA [None]
  - BACK PAIN [None]
  - CATARACT [None]
  - CHOLELITHIASIS [None]
  - DEPRESSION [None]
  - FATIGUE [None]
  - FINGER DEFORMITY [None]
  - FOOT DEFORMITY [None]
  - GAIT DISTURBANCE [None]
  - GRIP STRENGTH DECREASED [None]
  - HEPATIC STEATOSIS [None]
  - HEPATITIS [None]
  - HIATUS HERNIA [None]
  - INSOMNIA [None]
  - JOINT SWELLING [None]
  - LUNG INFECTION [None]
  - NAIL PITTING [None]
  - PANCREATITIS [None]
  - PLEURAL EFFUSION [None]
  - PNEUMOTHORAX [None]
  - PSORIASIS [None]
  - PSORIATIC ARTHROPATHY [None]
  - PULMONARY GRANULOMA [None]
  - SENSORY DISTURBANCE [None]
  - SINUSITIS [None]
  - TYPE 2 DIABETES MELLITUS [None]
